FAERS Safety Report 25882879 (Version 1)
Quarter: 2025Q4

REPORT INFORMATION
  Report Type: Report from Study
  Country: US (occurrence: US)
  Receive Date: 20251006
  Receipt Date: 20251006
  Transmission Date: 20260118
  Serious: Yes (Other)
  Sender: UCB
  Company Number: US-UCBSA-2022068667

PATIENT
  Age: 11 Year
  Sex: Male
  Weight: 36.1 kg

DRUGS (2)
  1. FINTEPLA [Suspect]
     Active Substance: FENFLURAMINE
     Indication: Severe myoclonic epilepsy of infancy
     Dosage: 2.6 MILLILITER, 2X/DAY (BID)
     Dates: start: 20210204
  2. FINTEPLA [Suspect]
     Active Substance: FENFLURAMINE
     Dosage: 3.5 MILLILITER, 2X/DAY (BID)

REACTIONS (4)
  - Seizure [Not Recovered/Not Resolved]
  - Pericardial effusion [Unknown]
  - Diarrhoea [Not Recovered/Not Resolved]
  - Aortic dilatation [Unknown]

NARRATIVE: CASE EVENT DATE: 20221129
